FAERS Safety Report 10228829 (Version 1)
Quarter: 2014Q2

REPORT INFORMATION
  Report Type: Spontaneous
  Country: GB (occurrence: GB)
  Receive Date: 20140610
  Receipt Date: 20140610
  Transmission Date: 20141212
  Serious: Yes (Hospitalization, Other)
  Sender: FDA-Public Use
  Company Number: GB-TEVA-485943ISR

PATIENT
  Age: 47 Year
  Sex: Male
  Weight: 136 kg

DRUGS (14)
  1. DOXYCYCLINE [Suspect]
     Indication: POST PROCEDURAL PNEUMONIA
     Dosage: 300 MILLIGRAM DAILY;
     Route: 048
     Dates: end: 20140518
  2. AMLODIPINE [Concomitant]
  3. CIPROFLOXACIN [Concomitant]
  4. DIHYDROCODEINE [Concomitant]
  5. FLUCLOXACILLIN [Concomitant]
  6. FUROSEMIDE [Concomitant]
  7. GENTAMICIN [Concomitant]
  8. GLICLAZIDE [Concomitant]
  9. LIRAGLUTIDE [Concomitant]
  10. METFORMIN [Concomitant]
  11. PARACETAMOL [Concomitant]
  12. PREGABALIN [Concomitant]
  13. RAMIPRIL [Concomitant]
  14. TAZOCIN [Concomitant]

REACTIONS (4)
  - Transaminases increased [Recovering/Resolving]
  - Coagulopathy [Recovering/Resolving]
  - Blood alkaline phosphatase increased [Recovering/Resolving]
  - Respiratory failure [Unknown]
